FAERS Safety Report 4350283-1 (Version None)
Quarter: 2004Q2

REPORT INFORMATION
  Report Type: 
  Country: None (occurrence: None)
  Receive Date: 20040426
  Receipt Date: 20040422
  Transmission Date: 20050107
  Serious: Yes (Death, Life-Threatening)
  Sender: FDA-Public Use
  Company Number: 430001M03CHE

PATIENT
  Age: 24 Year
  Sex: Female

DRUGS (2)
  1. NOVANTRONE [Suspect]
     Indication: MULTIPLE SCLEROSIS
  2. INTERFERON [Concomitant]

REACTIONS (20)
  - ATRIAL FIBRILLATION [None]
  - AUTONOMIC NERVOUS SYSTEM IMBALANCE [None]
  - BONE MARROW DISORDER [None]
  - BRADYCARDIA [None]
  - CARDIAC FAILURE [None]
  - CARDIOTOXICITY [None]
  - CHEST X-RAY ABNORMAL [None]
  - CIRCULATORY COLLAPSE [None]
  - DYSPNOEA [None]
  - EJECTION FRACTION DECREASED [None]
  - HEADACHE [None]
  - HYPOTONIA [None]
  - INFECTION [None]
  - PROGRESSIVE MULTIPLE SCLEROSIS [None]
  - PULMONARY OEDEMA [None]
  - PYREXIA [None]
  - SOMNOLENCE [None]
  - TROPONIN INCREASED [None]
  - VENTRICULAR FIBRILLATION [None]
  - VENTRICULAR HYPOKINESIA [None]
